FAERS Safety Report 11658202 (Version 1)
Quarter: 2015Q4

REPORT INFORMATION
  Report Type: Spontaneous
  Country: NL (occurrence: NL)
  Receive Date: 20151025
  Receipt Date: 20151025
  Transmission Date: 20160304
  Serious: Yes (Death, Other)
  Sender: FDA-Public Use
  Company Number: NL-CIPLA LTD.-2015NL08073

PATIENT

DRUGS (2)
  1. CARBOPLATIN. [Suspect]
     Active Substance: CARBOPLATIN
     Indication: OVARIAN CANCER
     Dosage: AUC 5 ON DAY 1, Q4 WEEKS FOR TWO CYCLES
     Route: 065
  2. DOXORUBICIN [Suspect]
     Active Substance: DOXORUBICIN
     Indication: OVARIAN CANCER
     Dosage: 50 MG/M2, ON DAY 1, Q4 WEEKS FOR SIX CYCLES
     Route: 065

REACTIONS (5)
  - Ileus [Unknown]
  - Death [Fatal]
  - Disease progression [Unknown]
  - Dehydration [Unknown]
  - Diarrhoea [Unknown]
